FAERS Safety Report 5046536-4 (Version None)
Quarter: 2006Q3

REPORT INFORMATION
  Report Type: 
  Country: None (occurrence: None)
  Receive Date: 20060705
  Receipt Date: 20060705
  Transmission Date: 20061208
  Serious: Yes (Hospitalization)
  Sender: FDA-Public Use
  Company Number: None

PATIENT
  Age: 45 Year
  Sex: Male
  Weight: 81.3 kg

DRUGS (4)
  1. PHENYTOIN [Suspect]
     Indication: CONVULSION
     Dosage: 100 MG  (AS PE) Q8H  IV
     Route: 042
     Dates: start: 20060619, end: 20060620
  2. LABETALOL HCL [Concomitant]
  3. SIMVASTATIN [Concomitant]
  4. NS [Concomitant]

REACTIONS (1)
  - PLATELET DISORDER [None]
